FAERS Safety Report 7791460-7 (Version None)
Quarter: 2011Q4

REPORT INFORMATION
  Report Type: 
  Country: None (occurrence: None)
  Receive Date: 20111003
  Receipt Date: 20110920
  Transmission Date: 20120403
  Serious: Yes (Other)
  Sender: FDA-Public Use
  Company Number: US-RANBAXY-2011US-46658

PATIENT

DRUGS (8)
  1. CORTISONE ACETATE [Suspect]
     Indication: HYPERTENSION
     Dosage: UNK
     Route: 065
  2. CALAN [Suspect]
     Indication: PALPITATIONS
     Dosage: 120 MG , DAILY
     Route: 065
     Dates: start: 20060101
  3. CORTISONE ACETATE [Suspect]
     Indication: PALPITATIONS
     Dosage: 180 MG, UNK
     Route: 065
  4. ARIMIDEX [Suspect]
     Indication: BREAST CANCER
     Dosage: DAILY
     Route: 048
  5. VERAPAMIL [Suspect]
     Indication: PALPITATIONS
     Dosage: UNK , UNK
     Route: 065
  6. LEVOXYL [Concomitant]
     Indication: HYPERTHYROIDISM
     Dosage: 0.05 MG , UNK
     Route: 048
  7. CALAN [Suspect]
     Indication: HYPERTENSION
     Dosage: 240 MG , DAILY
     Route: 065
  8. VERAPAMIL [Suspect]
     Indication: HYPERTENSION

REACTIONS (3)
  - BREAST CANCER [None]
  - DRUG INEFFECTIVE [None]
  - VENTRICULAR EXTRASYSTOLES [None]
